FAERS Safety Report 18168902 (Version 1)
Quarter: 2020Q3

REPORT INFORMATION
  Report Type: Spontaneous
  Country: US (occurrence: US)
  Receive Date: 20200819
  Receipt Date: 20200819
  Transmission Date: 20201103
  Serious: No
  Sender: FDA-Public Use
  Company Number: US-PFIZER INC-2017094515

PATIENT
  Age: 47 Year
  Sex: Male
  Weight: 95.25 kg

DRUGS (3)
  1. LYRICA [Suspect]
     Active Substance: PREGABALIN
     Indication: NEURALGIA
     Dosage: 300 MG, 2X/DAY (100MG CAPSULE, AT 3 CAPSULES TWICE A DAY)
     Route: 048
     Dates: start: 2018
  2. HYDROCODONE [Concomitant]
     Active Substance: HYDROCODONE
     Indication: PAIN
     Dosage: 5?325MG AS NEEDED
     Dates: start: 2001
  3. LYRICA [Suspect]
     Active Substance: PREGABALIN
     Indication: MULTIPLE SCLEROSIS

REACTIONS (4)
  - Loss of personal independence in daily activities [Unknown]
  - Product dose omission issue [Unknown]
  - Sunburn [Unknown]
  - Erythema [Unknown]
